FAERS Safety Report 24916353 (Version 2)
Quarter: 2025Q1

REPORT INFORMATION
  Report Type: Spontaneous
  Country: US (occurrence: US)
  Receive Date: 20250203
  Receipt Date: 20250211
  Transmission Date: 20250409
  Serious: Yes (Other)
  Sender: ELI LILLY AND COMPANY
  Company Number: US-ELI_LILLY_AND_COMPANY-US202501021777

PATIENT
  Age: 12 Year
  Sex: Female
  Weight: 50.6 kg

DRUGS (5)
  1. FLUOXETINE HYDROCHLORIDE [Suspect]
     Active Substance: FLUOXETINE HYDROCHLORIDE
     Indication: Product used for unknown indication
     Route: 065
  2. APTIOM [Suspect]
     Active Substance: ESLICARBAZEPINE ACETATE
     Indication: Epilepsy
     Route: 048
  3. SERTRALINE [Suspect]
     Active Substance: SERTRALINE HYDROCHLORIDE
     Indication: Product used for unknown indication
     Route: 065
  4. HYDROXYZINE HYDROCHLORIDE [Suspect]
     Active Substance: HYDROXYZINE HYDROCHLORIDE
     Indication: Insomnia
     Route: 065
  5. KLONOPIN [Suspect]
     Active Substance: CLONAZEPAM
     Indication: Product used for unknown indication
     Route: 065

REACTIONS (21)
  - Syncope [Recovering/Resolving]
  - Polyarthritis [Recovering/Resolving]
  - Vitamin D decreased [Recovering/Resolving]
  - Mood swings [Recovering/Resolving]
  - Acanthosis nigricans [Recovering/Resolving]
  - Weight increased [Recovering/Resolving]
  - Abdominal pain [Recovering/Resolving]
  - Food aversion [Recovering/Resolving]
  - Electric shock sensation [Recovering/Resolving]
  - Blood insulin increased [Recovering/Resolving]
  - Gastrooesophageal reflux disease [Recovering/Resolving]
  - Hyperaesthesia [Recovering/Resolving]
  - Musculoskeletal pain [Recovering/Resolving]
  - Gastrointestinal disorder [Recovering/Resolving]
  - Depression [Recovering/Resolving]
  - Anxiety disorder [Recovering/Resolving]
  - Gastritis [Recovering/Resolving]
  - Hypersomnia [Recovering/Resolving]
  - Dizziness [Recovering/Resolving]
  - Headache [Recovering/Resolving]
  - Sleep disorder [Recovering/Resolving]
